FAERS Safety Report 15889400 (Version 1)
Quarter: 2019Q1

REPORT INFORMATION
  Report Type: Spontaneous
  Country: US (occurrence: US)
  Receive Date: 20190130
  Receipt Date: 20190130
  Transmission Date: 20190417
  Serious: Yes (Disabling)
  Sender: FDA-Public Use
  Company Number: None

PATIENT
  Age: 36 Year
  Sex: Male
  Weight: 67.5 kg

DRUGS (1)
  1. CIPROFLOXACIN. [Suspect]
     Active Substance: CIPROFLOXACIN
     Indication: PROSTATITIS
     Dosage: ?          QUANTITY:1 CAPSULE(S);?
     Route: 048

REACTIONS (4)
  - Loss of personal independence in daily activities [None]
  - Arthralgia [None]
  - Tendonitis [None]
  - Back pain [None]

NARRATIVE: CASE EVENT DATE: 20160805
